FAERS Safety Report 19583318 (Version 1)
Quarter: 2021Q3

REPORT INFORMATION
  Report Type: Spontaneous
  Country: US (occurrence: US)
  Receive Date: 20210720
  Receipt Date: 20210720
  Transmission Date: 20211014
  Serious: Yes (Other)
  Sender: FDA-Public Use
  Company Number: US-APOTEX-2021AP017792

PATIENT
  Age: 16 Year
  Sex: Female

DRUGS (2)
  1. TEMOZOLOMIDE. [Suspect]
     Active Substance: TEMOZOLOMIDE
     Dosage: 200 MILLIGRAM/SQ. METER, QD FOR 5 DAYS (PER CYCLE EVERY 28 DAYS)
     Route: 065
  2. TEMOZOLOMIDE. [Suspect]
     Active Substance: TEMOZOLOMIDE
     Indication: GLIOMA
     Dosage: 90 MILLIGRAM/SQ. METER, QD
     Route: 065

REACTIONS (4)
  - Hypermutation [Unknown]
  - Glioma [Unknown]
  - Neoplasm recurrence [Unknown]
  - Drug resistance [Unknown]
